FAERS Safety Report 26021478 (Version 1)
Quarter: 2025Q4

REPORT INFORMATION
  Report Type: Spontaneous
  Country: US (occurrence: None)
  Receive Date: 20251110
  Receipt Date: 20251110
  Transmission Date: 20260118
  Serious: No
  Sender: FDA-CTU
  Company Number: None

PATIENT
  Age: 52 Year
  Sex: Female

DRUGS (1)
  1. XDEMVY [Suspect]
     Active Substance: LOTILANER
     Indication: Illness
     Dosage: FREQUENCY : TWICE A DAY;?
     Route: 047
     Dates: start: 20251027

REACTIONS (2)
  - Therapy interrupted [None]
  - Wrong technique in product usage process [None]

NARRATIVE: CASE EVENT DATE: 20251031
